APPROVED DRUG PRODUCT: BORTEZOMIB
Active Ingredient: BORTEZOMIB
Strength: 1MG/VIAL
Dosage Form/Route: POWDER;INTRAVENOUS, SUBCUTANEOUS
Application: A219167 | Product #001 | TE Code: AP
Applicant: GLAND PHARMA LTD
Approved: Jan 6, 2026 | RLD: No | RS: No | Type: RX